FAERS Safety Report 7586386-8 (Version None)
Quarter: 2011Q3

REPORT INFORMATION
  Report Type: 
  Country: None (occurrence: None)
  Receive Date: 20110701
  Receipt Date: 20110621
  Transmission Date: 20111222
  Serious: Yes (Other)
  Sender: FDA-Public Use
  Company Number: A0931774A

PATIENT
  Sex: Female

DRUGS (3)
  1. SPIRIVA [Suspect]
     Route: 065
     Dates: start: 20100101
  2. SERETIDE [Suspect]
     Route: 065
     Dates: start: 20100101
  3. BAMIFIX [Suspect]
     Route: 065
     Dates: start: 20100101

REACTIONS (5)
  - ASPARTATE AMINOTRANSFERASE INCREASED [None]
  - ALANINE AMINOTRANSFERASE INCREASED [None]
  - HEPATITIS [None]
  - HEPATITIS VIRAL [None]
  - PRURITUS [None]
